FAERS Safety Report 7704997-3 (Version None)
Quarter: 2011Q3

REPORT INFORMATION
  Report Type: 
  Country: None (occurrence: None)
  Receive Date: 20110823
  Receipt Date: 20110808
  Transmission Date: 20111222
  Serious: Yes (Other)
  Sender: FDA-Public Use
  Company Number: CA-WATSON-2011-13322

PATIENT

DRUGS (2)
  1. LAMOTRIGINE [Suspect]
     Dosage: 200 MG, DAILY
     Route: 063
  2. LAMOTRIGINE [Suspect]
     Indication: BIPOLAR DISORDER
     Dosage: 200 MG, DAILY
     Route: 064

REACTIONS (1)
  - HEPATIC ENZYME INCREASED [None]
